FAERS Safety Report 6615299-0 (Version None)
Quarter: 2010Q1

REPORT INFORMATION
  Report Type: 
  Country: None (occurrence: None)
  Receive Date: 20100305
  Receipt Date: 20090828
  Transmission Date: 20100710
  Serious: No
  Sender: FDA-Public Use
  Company Number: A0608856A

PATIENT
  Age: 59 Year
  Sex: Female

DRUGS (1)
  1. REQUIP [Suspect]
     Indication: RESTLESS LEGS SYNDROME
     Dosage: .5MG PER DAY
     Route: 048

REACTIONS (5)
  - ADVERSE DRUG REACTION [None]
  - DRUG EFFECT DECREASED [None]
  - PRURITUS [None]
  - RESTLESS LEGS SYNDROME [None]
  - SCAB [None]
